FAERS Safety Report 12194237 (Version 2)
Quarter: 2016Q2

REPORT INFORMATION
  Report Type: Spontaneous
  Country: US (occurrence: US)
  Receive Date: 20160321
  Receipt Date: 20160406
  Transmission Date: 20160815
  Serious: Yes (Other)
  Sender: FDA-Public Use
  Company Number: US-JNJCP-30000327969

PATIENT
  Sex: Female

DRUGS (2)
  1. NEUTROGENA AGE SHIELD FACE SPF 110 [Suspect]
     Active Substance: AVOBENZONE\HOMOSALATE\OCTISALATE\OCTOCRYLENE\OXYBENZONE
     Indication: PROPHYLAXIS
     Dosage: EVERY MORNING
     Route: 061
     Dates: end: 20160308
  2. VASELINE PURE [Suspect]
     Active Substance: PETROLATUM
     Indication: PRODUCT USED FOR UNKNOWN INDICATION
     Dosage: IN THE NIGHT
     Route: 061

REACTIONS (3)
  - Application site discolouration [Not Recovered/Not Resolved]
  - Breast cancer [Not Recovered/Not Resolved]
  - Application site rash [Not Recovered/Not Resolved]
